FAERS Safety Report 10606849 (Version 1)
Quarter: 2014Q4

REPORT INFORMATION
  Report Type: Spontaneous
  Country: FR (occurrence: FR)
  Receive Date: 20141125
  Receipt Date: 20141125
  Transmission Date: 20150529
  Serious: Yes (Other)
  Sender: FDA-Public Use
  Company Number: FR-ABBVIE-14P-056-1312122-00

PATIENT
  Age: 69 Year
  Sex: Male

DRUGS (1)
  1. ENANTONE LP [Suspect]
     Active Substance: LEUPROLIDE ACETATE
     Indication: PROSTATE CANCER
     Route: 050

REACTIONS (3)
  - Prostatic specific antigen increased [Not Recovered/Not Resolved]
  - Blood testosterone normal [Not Recovered/Not Resolved]
  - Testicular atrophy [Unknown]

NARRATIVE: CASE EVENT DATE: 2014
